FAERS Safety Report 8948961 (Version 1)
Quarter: 2012Q4

REPORT INFORMATION
  Report Type: 
  Country: US (occurrence: US)
  Receive Date: 20121206
  Receipt Date: 20121206
  Transmission Date: 20130627
  Serious: No
  Sender: FDA-Public Use
  Company Number: US-009507513-1212USA002098

PATIENT

DRUGS (5)
  1. CLARITIN-D 24 HOUR [Suspect]
     Indication: SNEEZING
     Dosage: UNK, Unknown
     Route: 048
  2. CLARITIN-D 24 HOUR [Suspect]
     Indication: PRURITUS
  3. CLARITIN-D 24 HOUR [Suspect]
     Indication: LACRIMATION INCREASED
  4. CLARITIN-D 24 HOUR [Suspect]
     Indication: SINUS DISORDER
  5. CLARITIN-D 24 HOUR [Suspect]
     Indication: HEADACHE

REACTIONS (3)
  - Restlessness [Unknown]
  - Insomnia [Unknown]
  - Feeling jittery [Unknown]
